FAERS Safety Report 7572536-6 (Version None)
Quarter: 2011Q2

REPORT INFORMATION
  Report Type: 
  Country: None (occurrence: None)
  Receive Date: 20110627
  Receipt Date: 20110620
  Transmission Date: 20111010
  Serious: Yes (Hospitalization)
  Sender: FDA-Public Use
  Company Number: US-BIOGENIDEC-2011BI004050

PATIENT
  Age: 56 Year
  Sex: Female

DRUGS (2)
  1. AVONEX [Suspect]
     Indication: MULTIPLE SCLEROSIS
     Route: 030
     Dates: start: 20020426, end: 20030601
  2. AVONEX [Suspect]
     Route: 030
     Dates: start: 20100305

REACTIONS (5)
  - BLOOD PRESSURE INCREASED [None]
  - BRONCHITIS [None]
  - GASTROINTESTINAL BACTERIAL INFECTION [None]
  - GASTRIC ULCER HELICOBACTER [None]
  - HAEMOGLOBIN DECREASED [None]
